FAERS Safety Report 20879497 (Version 1)
Quarter: 2022Q2

REPORT INFORMATION
  Report Type: Spontaneous
  Country: US (occurrence: US)
  Receive Date: 20220526
  Receipt Date: 20220526
  Transmission Date: 20220721
  Serious: No
  Sender: FDA-Public Use
  Company Number: US-ELI_LILLY_AND_COMPANY-US202205011224

PATIENT
  Sex: Male

DRUGS (2)
  1. HUMULIN N [Suspect]
     Active Substance: INSULIN HUMAN
     Indication: Type 2 diabetes mellitus
     Dosage: 12 U, UNKNOWN (10 TO 12 UNITS WITH SLIDING SCALE)
     Route: 058
     Dates: start: 2010
  2. LANTUS [Concomitant]
     Active Substance: INSULIN GLARGINE

REACTIONS (7)
  - Blood glucose increased [Unknown]
  - Neuropathy peripheral [Unknown]
  - Visual impairment [Unknown]
  - Localised infection [Unknown]
  - Blister [Unknown]
  - Arthropod bite [Unknown]
  - Incorrect dose administered [Unknown]
